FAERS Safety Report 4997426-4 (Version None)
Quarter: 2006Q2

REPORT INFORMATION
  Report Type: 
  Country: None (occurrence: None)
  Receive Date: 20060509
  Receipt Date: 20051115
  Transmission Date: 20061013
  Serious: Yes (Hospitalization, Disabling)
  Sender: FDA-Public Use
  Company Number: US-MERCK-0511USA02492

PATIENT
  Age: 63 Year
  Sex: Female
  Weight: 109 kg

DRUGS (1)
  1. VIOXX [Suspect]
     Indication: OSTEOARTHRITIS
     Route: 048
     Dates: start: 20020101, end: 20020101

REACTIONS (38)
  - ABDOMINAL PAIN LOWER [None]
  - ANXIETY [None]
  - BLOOD CREATININE INCREASED [None]
  - BLOOD UREA INCREASED [None]
  - BRONCHITIS [None]
  - BRONCHOSPASM [None]
  - CEREBROVASCULAR ACCIDENT [None]
  - CERVICOGENIC HEADACHE [None]
  - CHEST PAIN [None]
  - COELIAC DISEASE [None]
  - COMPLEX REGIONAL PAIN SYNDROME [None]
  - CONJUNCTIVAL HAEMORRHAGE [None]
  - DEPRESSION [None]
  - DIARRHOEA [None]
  - DYSPEPSIA [None]
  - DYSPHAGIA [None]
  - DYSPNOEA [None]
  - FOLLICULITIS [None]
  - GINGIVAL BLEEDING [None]
  - HAEMATOMA [None]
  - HEADACHE [None]
  - HEMIPARESIS [None]
  - HYPOKALAEMIA [None]
  - JOINT SPRAIN [None]
  - LIMB INJURY [None]
  - MUSCLE SPASMS [None]
  - MUSCULOSKELETAL DISORDER [None]
  - NAUSEA [None]
  - PAIN IN EXTREMITY [None]
  - PNEUMONIA [None]
  - POLYTRAUMATISM [None]
  - RAYNAUD'S PHENOMENON [None]
  - RENAL CYST [None]
  - RENAL FAILURE [None]
  - SLEEP APNOEA SYNDROME [None]
  - TRANSIENT ISCHAEMIC ATTACK [None]
  - VISION BLURRED [None]
  - WEIGHT DECREASED [None]
